FAERS Safety Report 17262771 (Version 1)
Quarter: 2019Q4

REPORT INFORMATION
  Report Type: Spontaneous
  Country: US (occurrence: US)
  Receive Date: 20191218
  Receipt Date: 20191218
  Transmission Date: 20200122
  Serious: Yes (Hospitalization)
  Sender: FDA-Public Use
  Company Number: None

PATIENT
  Age: 59 Year
  Sex: Male

DRUGS (3)
  1. TEMOZOLOMIDE 140MG [Suspect]
     Active Substance: TEMOZOLOMIDE
  2. TEMOZOLOMIDE 100MG [Suspect]
     Active Substance: TEMOZOLOMIDE
     Indication: NON-HODGKIN^S LYMPHOMA
     Dosage: ?          OTHER FREQUENCY:7-11 DAYS ;?
     Route: 048
  3. TESTOSTERONE GEL [Concomitant]
     Active Substance: TESTOSTERONE

REACTIONS (2)
  - Chemotherapy [None]
  - Hospitalisation [None]

NARRATIVE: CASE EVENT DATE: 20191211
